FAERS Safety Report 9016732 (Version 3)
Quarter: 2013Q2

REPORT INFORMATION
  Report Type: Spontaneous
  Country: US (occurrence: US)
  Receive Date: 20130116
  Receipt Date: 20130419
  Transmission Date: 20140414
  Serious: No
  Sender: FDA-Public Use
  Company Number: US-009507513-1301USA006355

PATIENT
  Sex: Female

DRUGS (2)
  1. PEGINTRON [Suspect]
     Indication: HEPATITIS C
     Dosage: 0.4 ML OF 120MCG, QW
     Route: 058
     Dates: start: 20120904
  2. RIBASPHERE [Concomitant]
     Dosage: 2 CAPSULES IN THE MORNING AND 3 CAPSULES IN THE EVENING, BID
     Route: 048

REACTIONS (2)
  - Depression [Unknown]
  - Anxiety [Unknown]
